FAERS Safety Report 23382700 (Version 2)
Quarter: 2024Q1

REPORT INFORMATION
  Report Type: Spontaneous
  Country: US (occurrence: US)
  Receive Date: 20240109
  Receipt Date: 20240326
  Transmission Date: 20240409
  Serious: Yes (Other)
  Sender: FDA-Public Use
  Company Number: US-PFIZER INC-202400002716

PATIENT
  Age: 75 Year
  Sex: Male
  Weight: 92.08 kg

DRUGS (1)
  1. VYNDAMAX [Suspect]
     Active Substance: TAFAMIDIS
     Indication: Cardiac amyloidosis
     Dosage: 61 MG, DAILY
     Route: 048
     Dates: start: 20190718

REACTIONS (2)
  - Arthritis [Unknown]
  - Mobility decreased [Unknown]

NARRATIVE: CASE EVENT DATE: 20230901
